FAERS Safety Report 23933933 (Version 2)
Quarter: 2024Q4

REPORT INFORMATION
  Report Type: Spontaneous
  Country: US (occurrence: US)
  Receive Date: 20240603
  Receipt Date: 20241218
  Transmission Date: 20250114
  Serious: Yes (Death, Hospitalization, Other)
  Sender: ALEXION PHARMACEUTICALS
  Company Number: 2024A127713

PATIENT
  Age: 69 Year
  Weight: 83.5 kg

DRUGS (9)
  1. CRESTOR [Suspect]
     Active Substance: ROSUVASTATIN CALCIUM
     Route: 065
  2. TOPROL XL [Suspect]
     Active Substance: METOPROLOL SUCCINATE
     Route: 065
  3. CABAZITAXEL [Suspect]
     Active Substance: CABAZITAXEL
     Indication: Adenocarcinoma
     Dosage: 20 MILLIGRAM/SQ. METER, Q3W
  4. LOKELMA [Concomitant]
     Active Substance: SODIUM ZIRCONIUM CYCLOSILICATE
  5. LEUPROLIDE [Concomitant]
     Active Substance: LEUPROLIDE
  6. ASPIRIN [Concomitant]
     Active Substance: ASPIRIN
  7. TENORMIN [Concomitant]
     Active Substance: ATENOLOL
     Dosage: UNK
  8. LIPITOR [Concomitant]
     Active Substance: ATORVASTATIN CALCIUM
     Dosage: UNK
  9. XGEVA [Concomitant]
     Active Substance: DENOSUMAB
     Dosage: UNK

REACTIONS (29)
  - Death [Fatal]
  - Hypotension [Recovered/Resolved]
  - Dyspnoea [Unknown]
  - Fatigue [Unknown]
  - Cardiac failure [Unknown]
  - Cardiogenic shock [Unknown]
  - Orthostatic hypotension [Unknown]
  - Dysstasia [Unknown]
  - Presyncope [Unknown]
  - Tachycardia [Unknown]
  - Haemoglobin decreased [Unknown]
  - Haematocrit decreased [Unknown]
  - Blood urea increased [Unknown]
  - Glomerular filtration rate [Unknown]
  - Blood glucose increased [Unknown]
  - Blood calcium decreased [Unknown]
  - Blood albumin decreased [Unknown]
  - Troponin increased [Unknown]
  - Brain natriuretic peptide increased [Unknown]
  - Asthenia [Unknown]
  - Blood alkaline phosphatase increased [Unknown]
  - Aspartate aminotransferase increased [Unknown]
  - Alanine aminotransferase increased [Unknown]
  - Anxiety [Unknown]
  - Sinus tachycardia [Unknown]
  - Hepatitis acute [Unknown]
  - Bowel movement irregularity [Unknown]
  - Oxygen saturation decreased [Unknown]
  - Glomerular filtration rate decreased [Unknown]
